FAERS Safety Report 5783119-2 (Version None)
Quarter: 2008Q2

REPORT INFORMATION
  Report Type: 
  Country: None (occurrence: None)
  Receive Date: 20080619
  Receipt Date: 20080619
  Transmission Date: 20081010
  Serious: Yes (Other)
  Sender: FDA-Public Use
  Company Number: None

PATIENT
  Age: 31 Year
  Sex: Female
  Weight: 73.4827 kg

DRUGS (1)
  1. DAYQUIL N/A VICKS [Suspect]
     Indication: NASOPHARYNGITIS
     Dosage: 1 PILL 1 TIME IN THE MORN PO
     Route: 048
     Dates: start: 20060801, end: 20060801

REACTIONS (6)
  - BLINDNESS TRANSIENT [None]
  - DEAFNESS TRANSITORY [None]
  - DIZZINESS [None]
  - FLUSHING [None]
  - NAUSEA [None]
  - UNEVALUABLE EVENT [None]
